FAERS Safety Report 10776168 (Version 1)
Quarter: 2015Q1

REPORT INFORMATION
  Report Type: Spontaneous
  Country: JP (occurrence: JP)
  Receive Date: 20150209
  Receipt Date: 20150209
  Transmission Date: 20150721
  Serious: Yes (Death, Other)
  Sender: FDA-Public Use
  Company Number: JP-ASTELLAS-2015US003757

PATIENT
  Sex: Female

DRUGS (8)
  1. LOXOPROFEN [Concomitant]
     Active Substance: LOXOPROFEN
     Indication: LUNG ADENOCARCINOMA
     Dosage: UNK UNK, UNKNOWN FREQ.
     Route: 048
     Dates: start: 20141120, end: 20141224
  2. ERLOTINIB [Suspect]
     Active Substance: ERLOTINIB
     Indication: LUNG ADENOCARCINOMA
     Route: 048
     Dates: start: 20141217, end: 20141224
  3. OXYCONTIN [Concomitant]
     Active Substance: OXYCODONE HYDROCHLORIDE
     Indication: LUNG ADENOCARCINOMA
     Dosage: UNK UNK, UNKNOWN FREQ.
     Route: 048
     Dates: start: 20141219, end: 20141224
  4. NOVAMIN                            /00013301/ [Concomitant]
     Active Substance: PROCHLORPERAZINE MALEATE
     Indication: PROPHYLAXIS
     Dosage: UNK UNK, UNKNOWN FREQ.
     Route: 048
     Dates: start: 20141219, end: 20141224
  5. CLARITHROMYCIN. [Concomitant]
     Active Substance: CLARITHROMYCIN
     Indication: TOOTH EXTRACTION
     Dosage: UNK UNK, UNKNOWN FREQ.
     Route: 048
     Dates: start: 20141218, end: 20141224
  6. OXINORM                            /00045603/ [Concomitant]
     Indication: LUNG ADENOCARCINOMA
     Dosage: UNK UNK, UNKNOWN FREQ.
     Route: 048
     Dates: start: 20141217, end: 20141224
  7. MAGMITT [Concomitant]
     Active Substance: MAGNESIUM OXIDE
     Indication: PROPHYLAXIS
     Dosage: UNK UNK, UNKNOWN FREQ.
     Route: 048
     Dates: start: 20141219, end: 20141224
  8. REBAMIPIDE [Concomitant]
     Active Substance: REBAMIPIDE
     Indication: LUNG ADENOCARCINOMA
     Dosage: UNK UNK, UNKNOWN FREQ.
     Route: 048
     Dates: start: 20141120, end: 20141224

REACTIONS (2)
  - Respiratory failure [Fatal]
  - Lung disorder [Fatal]

NARRATIVE: CASE EVENT DATE: 20141224
